FAERS Safety Report 17173848 (Version 1)
Quarter: 2019Q4

REPORT INFORMATION
  Report Type: Spontaneous
  Country: US (occurrence: US)
  Receive Date: 20191218
  Receipt Date: 20191218
  Transmission Date: 20200122
  Serious: Yes (Hospitalization)
  Sender: FDA-Public Use
  Company Number: None

PATIENT
  Age: 79 Year
  Sex: Female

DRUGS (12)
  1. SPIRIVA CAP HANDLHLR [Concomitant]
     Dates: start: 20191107
  2. XARELTO TAB 20 MG [Concomitant]
     Dates: start: 20190509
  3. DIGOXIN TAB.125MG [Concomitant]
     Dates: start: 20191216
  4. SOTALOL AF TAB 120 MG [Concomitant]
     Dates: start: 20191107
  5. DILTIAZEM CAP 240MG/24 [Concomitant]
     Dates: start: 20191216
  6. DILTIAZEM CAP 120 MG ER [Concomitant]
     Dates: start: 20190801
  7. PREDNISONE TAB 20MG [Concomitant]
     Active Substance: PREDNISONE
     Dates: start: 20191216
  8. TRELEGY AER ELLIPTA [Concomitant]
     Dates: start: 20190620
  9. DILTIAZEM CAP 120 MG ER [Concomitant]
     Dates: start: 20191107
  10. REPATHA [Suspect]
     Active Substance: EVOLOCUMAB
     Indication: HYPERCHOLESTEROLAEMIA
     Dosage: ?          OTHER FREQUENCY:EVERY OTHER WEEK;?
     Route: 058
     Dates: start: 20180920
  11. ADVAIR DISKU AER 500/50 [Concomitant]
     Dates: start: 20191107
  12. SOTALOL HCL TAB 120 MG [Concomitant]
     Dates: start: 20190620

REACTIONS (1)
  - Pneumonia [None]

NARRATIVE: CASE EVENT DATE: 20191209
